FAERS Safety Report 4288655-6 (Version None)
Quarter: 2004Q1

REPORT INFORMATION
  Report Type: 
  Country: None (occurrence: None)
  Receive Date: 20040205
  Receipt Date: 20040127
  Transmission Date: 20041129
  Serious: Yes (Hospitalization)
  Sender: FDA-Public Use
  Company Number: 2004GB00242

PATIENT
  Age: 50 Year
  Sex: Male

DRUGS (1)
  1. LOSEC I.V. [Suspect]

REACTIONS (5)
  - ANAL HAEMORRHAGE [None]
  - ANGIONEUROTIC OEDEMA [None]
  - CONDITION AGGRAVATED [None]
  - MOUTH ULCERATION [None]
  - RASH [None]
